FAERS Safety Report 25433199 (Version 1)
Quarter: 2025Q2

REPORT INFORMATION
  Report Type: Report from Study
  Country: US (occurrence: US)
  Receive Date: 20250613
  Receipt Date: 20250613
  Transmission Date: 20250716
  Serious: Yes (Hospitalization, Other)
  Sender: ABBVIE
  Company Number: US-ABBVIE-6317758

PATIENT
  Age: 56 Year
  Sex: Female

DRUGS (1)
  1. SKYRIZI [Suspect]
     Active Substance: RISANKIZUMAB-RZAA
     Indication: Psoriatic arthropathy
     Route: 058
     Dates: start: 20250226

REACTIONS (12)
  - Hospitalisation [Recovered/Resolved]
  - Thrombosis [Recovering/Resolving]
  - Chest pain [Recovered/Resolved]
  - Swelling face [Unknown]
  - Tachycardia [Recovering/Resolving]
  - Peripheral swelling [Unknown]
  - Dyspnoea [Recovering/Resolving]
  - Pharyngitis streptococcal [Recovered/Resolved]
  - Hypertension [Recovering/Resolving]
  - Dysphagia [Recovering/Resolving]
  - Joint surgery [Recovering/Resolving]
  - Contusion [Unknown]

NARRATIVE: CASE EVENT DATE: 20250101
